FAERS Safety Report 9103867 (Version 1)
Quarter: 2013Q1

REPORT INFORMATION
  Report Type: Spontaneous
  Country: US (occurrence: US)
  Receive Date: 20130219
  Receipt Date: 20130219
  Transmission Date: 20140127
  Serious: Yes (Other)
  Sender: FDA-Public Use
  Company Number: US-PFIZER INC-2013057705

PATIENT
  Age: 8 Month
  Sex: Male
  Weight: 9.3 kg

DRUGS (5)
  1. SULFADIAZINE SILVER [Suspect]
     Indication: THERMAL BURN
     Dosage: 600 TO 800 G, TWICE DAILY
     Route: 061
  2. SALINE DRESSING [Concomitant]
     Indication: THERMAL BURN
     Dosage: UNK
  3. PENICILLIN V POTASSIUM [Concomitant]
     Indication: THERMAL BURN
     Dosage: UNK
     Route: 048
  4. DIPHENHYDRAMINE [Concomitant]
     Indication: THERMAL BURN
     Dosage: 15 MG, UNK
     Route: 048
  5. DICLOXACILLIN [Concomitant]
     Indication: THERMAL BURN

REACTIONS (8)
  - Drug level increased [Unknown]
  - Blood osmolarity increased [Unknown]
  - Cardio-respiratory arrest [Unknown]
  - Lactic acidosis [Recovered/Resolved]
  - Blood creatinine increased [None]
  - Blood glucose increased [None]
  - Respiratory acidosis [None]
  - Hypoxic-ischaemic encephalopathy [None]
